FAERS Safety Report 15533738 (Version 9)
Quarter: 2019Q4

REPORT INFORMATION
  Report Type: Report from Study
  Country: US (occurrence: US)
  Receive Date: 20181019
  Receipt Date: 20191128
  Transmission Date: 20200122
  Serious: Yes (Other)
  Sender: FDA-Public Use
  Company Number: PHEH2018US043603

PATIENT
  Age: 35 Year
  Sex: Female

DRUGS (2)
  1. GILENYA [Suspect]
     Active Substance: FINGOLIMOD HYDROCHLORIDE
     Indication: MULTIPLE SCLEROSIS
     Dosage: 0.5 MG, QD
     Route: 048
     Dates: start: 20180522
  2. GILENYA [Suspect]
     Active Substance: FINGOLIMOD HYDROCHLORIDE
     Indication: RELAPSING MULTIPLE SCLEROSIS

REACTIONS (21)
  - Liver function test increased [Unknown]
  - Vomiting [Unknown]
  - Visual impairment [Unknown]
  - Abdominal pain [Unknown]
  - Influenza [Recovering/Resolving]
  - Abdominal mass [Unknown]
  - Abdominal distension [Not Recovered/Not Resolved]
  - Memory impairment [Unknown]
  - Fall [Unknown]
  - Multiple sclerosis relapse [Recovering/Resolving]
  - Dyspepsia [Unknown]
  - Emotional disorder [Recovering/Resolving]
  - Hepatic steatosis [Recovering/Resolving]
  - Headache [Unknown]
  - Sleep disorder [Unknown]
  - Pain [Unknown]
  - Fatigue [Unknown]
  - Arthralgia [Unknown]
  - Gastrointestinal disorder [Unknown]
  - Joint injury [Unknown]
  - Insomnia [Unknown]

NARRATIVE: CASE EVENT DATE: 201903
